FAERS Safety Report 6601723-6 (Version None)
Quarter: 2010Q1

REPORT INFORMATION
  Report Type: 
  Country: None (occurrence: None)
  Receive Date: 20100225
  Receipt Date: 20100218
  Transmission Date: 20100710
  Serious: Yes (Hospitalization, Disabling, Other)
  Sender: FDA-Public Use
  Company Number: PH-PFIZER INC-2008051575

PATIENT
  Age: 64 Year
  Sex: Female
  Weight: 55 kg

DRUGS (18)
  1. IBUPROFEN [Suspect]
     Indication: ARTHRITIS
     Dosage: UNK
     Route: 048
     Dates: start: 20080305, end: 20080618
  2. NAPROXEN [Suspect]
     Indication: ARTHRITIS
     Dosage: UNK
     Route: 048
     Dates: start: 20080305, end: 20080618
  3. BLINDED *NO SUBJECT DRUG [Suspect]
     Indication: ARTHRITIS
     Dosage: UNK
     Route: 048
     Dates: start: 20080305, end: 20080618
  4. BLINDED *PLACEBO [Suspect]
     Indication: ARTHRITIS
     Dosage: UNK
     Route: 048
     Dates: start: 20080305, end: 20080618
  5. BLINDED CELECOXIB [Suspect]
     Indication: ARTHRITIS
     Dosage: UNK
     Route: 048
     Dates: start: 20080305, end: 20080618
  6. IBUPROFEN [Suspect]
     Dosage: UNK
     Route: 048
     Dates: start: 20080305, end: 20080618
  7. NAPROXEN [Suspect]
     Dosage: UNK
     Route: 048
     Dates: start: 20080305, end: 20080618
  8. METHOTREXATE [Suspect]
     Dosage: 10 MG, UNK
     Route: 048
     Dates: start: 20071109
  9. NEXIUM [Concomitant]
     Indication: PROPHYLAXIS
     Route: 048
     Dates: start: 20080305
  10. NORVASC [Concomitant]
     Route: 048
     Dates: start: 20050106
  11. PREDNISONE [Concomitant]
     Dosage: UNK
     Route: 048
     Dates: start: 20071205, end: 20081028
  12. TRAMADOL HCL [Concomitant]
     Route: 048
     Dates: start: 20071026
  13. ACETAMINOPHEN [Concomitant]
     Dosage: 500 MG, UNK
     Route: 048
     Dates: start: 20080429
  14. VITAMIN B12 AND FOLIC ACID [Concomitant]
     Route: 048
     Dates: start: 20080520
  15. MULTI-VITAMINS [Concomitant]
     Route: 048
     Dates: start: 20080520
  16. MOTILIUM [Concomitant]
     Indication: DIARRHOEA
     Dosage: UNK
     Route: 048
     Dates: start: 20080603, end: 20081028
  17. PANKREOFLAT [Concomitant]
     Indication: DIARRHOEA
     Route: 048
     Dates: start: 20080603
  18. CALTRATE [Concomitant]
     Route: 048
     Dates: end: 20080603

REACTIONS (9)
  - ANAEMIA [None]
  - ANAEMIA MEGALOBLASTIC [None]
  - DIARRHOEA [None]
  - EROSIVE OESOPHAGITIS [None]
  - GASTRITIS EROSIVE [None]
  - GASTROENTERITIS [None]
  - HELICOBACTER INFECTION [None]
  - LARGE INTESTINAL ULCER [None]
  - UPPER GASTROINTESTINAL HAEMORRHAGE [None]
